FAERS Safety Report 9945605 (Version 1)
Quarter: 2014Q1

REPORT INFORMATION
  Report Type: Spontaneous
  Country: US (occurrence: US)
  Receive Date: 20140303
  Receipt Date: 20140303
  Transmission Date: 20141002
  Serious: No
  Sender: FDA-Public Use
  Company Number: US-ABBVIE-13P-163-1050914-00

PATIENT
  Sex: Male
  Weight: 96.25 kg

DRUGS (5)
  1. HUMIRA [Suspect]
     Indication: RHEUMATOID ARTHRITIS
     Route: 058
     Dates: end: 201203
  2. PREDNISONE [Concomitant]
     Indication: RHEUMATOID ARTHRITIS
  3. NAPROXEN [Concomitant]
     Indication: RHEUMATOID ARTHRITIS
  4. NADOLOL [Concomitant]
     Indication: HYPERTENSION
  5. HYDROCODONE [Concomitant]
     Indication: PAIN

REACTIONS (5)
  - Neuralgia [Not Recovered/Not Resolved]
  - Herpes zoster [Unknown]
  - Pruritus [Not Recovered/Not Resolved]
  - Burning sensation [Not Recovered/Not Resolved]
  - Burning sensation [Not Recovered/Not Resolved]
